FAERS Safety Report 10003952 (Version 1)
Quarter: 2014Q1

REPORT INFORMATION
  Report Type: Report from Study
  Country: US (occurrence: US)
  Receive Date: 20140312
  Receipt Date: 20140312
  Transmission Date: 20141002
  Serious: Yes (Other)
  Sender: FDA-Public Use
  Company Number: US-US-EMD SERONO, INC.-7274972

PATIENT
  Age: 50 Year
  Sex: Female

DRUGS (1)
  1. REBIF [Suspect]
     Indication: PRODUCT USED FOR UNKNOWN INDICATION
     Route: 058
     Dates: start: 20070228

REACTIONS (7)
  - Endometriosis [Recovering/Resolving]
  - Uterine leiomyoma [Recovering/Resolving]
  - Type 2 diabetes mellitus [Recovering/Resolving]
  - Central nervous system lesion [Recovering/Resolving]
  - Injection site pain [Unknown]
  - Injection site bruising [Unknown]
  - Wrong technique in drug usage process [Not Recovered/Not Resolved]
